FAERS Safety Report 8770896 (Version 1)
Quarter: 2012Q4

REPORT INFORMATION
  Report Type: 
  Country: US (occurrence: US)
  Receive Date: 20120906
  Receipt Date: 20120906
  Transmission Date: 20130627
  Serious: Yes (Hospitalization)
  Sender: FDA-Public Use
  Company Number: US-BAYER-2012-091262

PATIENT
  Age: 38 Year
  Sex: Female
  Weight: 96.6 kg

DRUGS (8)
  1. YAZ [Suspect]
     Dosage: UNK
  2. GIANVI [Suspect]
  3. ADVAIR [Concomitant]
     Dosage: 250-50 diskus
     Dates: start: 20120420
  4. PREDNISONE [Concomitant]
     Dosage: 10 mg, UNK
     Dates: start: 20120531
  5. TRIAMCINOLONE [Concomitant]
     Dosage: UNK %, UNK
     Dates: start: 20120531
  6. ZYRTEC [Concomitant]
     Dosage: UNK, PRN
     Dates: start: 20120614
  7. ALBUTEROL INHALER [Concomitant]
     Indication: DYSPNOEA
     Route: 045
  8. NORETHINDRONE [Concomitant]
     Indication: MENORRHAGIA
     Dosage: UNK
     Dates: start: 20120605

REACTIONS (1)
  - Pulmonary embolism [None]
